FAERS Safety Report 24768147 (Version 1)
Quarter: 2024Q4

REPORT INFORMATION
  Report Type: Other
  Country: IN (occurrence: CH)
  Receive Date: 20241223
  Receipt Date: 20241223
  Transmission Date: 20250114
  Serious: Yes (Life-Threatening, Hospitalization, Other)
  Sender: BRECKENRIDGE PHARMACEUTICAL, INC.
  Company Number: CH-Breckenridge Pharmaceutical, Inc.-2167677

PATIENT
  Age: 77 Year
  Sex: Male

DRUGS (2)
  1. OXCARBAZEPINE [Suspect]
     Active Substance: OXCARBAZEPINE
     Indication: Trigeminal neuralgia
  2. CANDESARTAN [Concomitant]
     Active Substance: CANDESARTAN

REACTIONS (5)
  - Cholestatic liver injury [Recovered/Resolved]
  - Hepatic cyst [Unknown]
  - Normocytic anaemia [Recovered/Resolved]
  - Polyserositis [Recovered/Resolved]
  - Inflammation [Recovered/Resolved]
